FAERS Safety Report 4335689-9 (Version None)
Quarter: 2004Q2

REPORT INFORMATION
  Report Type: 
  Country: None (occurrence: None)
  Receive Date: 20040409
  Receipt Date: 20040203
  Transmission Date: 20050107
  Serious: Yes (Death, Hospitalization, Congenital Anomaly)
  Sender: FDA-Public Use
  Company Number: FR-GLAXOSMITHKLINE-B0322073A

PATIENT
  Sex: Male
  Weight: 2.3 kg

DRUGS (6)
  1. RETROVIR [Suspect]
     Indication: ANTIVIRAL PROPHYLAXIS
     Route: 042
     Dates: start: 20040107, end: 20040113
  2. COMBIVIR [Suspect]
     Indication: HIV INFECTION
     Dosage: 1UNIT TWICE PER DAY
     Dates: start: 20030806
  3. KALETRA [Suspect]
     Indication: HIV INFECTION
     Route: 048
     Dates: start: 20030806
  4. ZOLPIDEM TARTRATE [Suspect]
     Route: 048
  5. LEXOMIL [Suspect]
     Route: 048
  6. SUBUTEX [Concomitant]
     Route: 060

REACTIONS (22)
  - ACUTE PULMONARY OEDEMA [None]
  - ANURIA [None]
  - ATRIOVENTRICULAR CANAL [None]
  - CARDIAC FAILURE [None]
  - COAGULOPATHY [None]
  - CONGENITAL ANOMALY [None]
  - CYTOLYTIC HEPATITIS [None]
  - DRUG EXPOSURE DURING PREGNANCY [None]
  - ECHOGRAPHY ABNORMAL [None]
  - FACTOR II DEFICIENCY [None]
  - FACTOR V DEFICIENCY [None]
  - FOETAL DISTRESS SYNDROME [None]
  - HYPOGLYCAEMIA [None]
  - HYPONATRAEMIA [None]
  - LACTIC ACIDOSIS [None]
  - MYELODYSPLASTIC SYNDROME [None]
  - RENAL FAILURE [None]
  - SMALL FOR DATES BABY [None]
  - SPINAL MYELOGRAM ABNORMAL [None]
  - THROMBOCYTOPENIA [None]
  - TRISOMY 21 [None]
  - VENA CAVA THROMBOSIS [None]
